FAERS Safety Report 14493169 (Version 1)
Quarter: 2018Q1

REPORT INFORMATION
  Report Type: Spontaneous
  Country: US (occurrence: US)
  Receive Date: 20180205
  Receipt Date: 20180205
  Transmission Date: 20180509
  Serious: Yes (Other)
  Sender: FDA-Public Use
  Company Number: None

PATIENT
  Sex: Female

DRUGS (12)
  1. VITAMIN D3 [Concomitant]
     Active Substance: CHOLECALCIFEROL
  2. PANTOPRAZOLE [Concomitant]
     Active Substance: PANTOPRAZOLE
  3. LANTUS [Concomitant]
     Active Substance: INSULIN GLARGINE
  4. HUMIRA [Suspect]
     Active Substance: ADALIMUMAB
     Indication: RHEUMATOID ARTHRITIS
     Dosage: ?          OTHER FREQUENCY:QW;?
     Route: 058
     Dates: start: 20160930
  5. CYCLOBENZAPR [Concomitant]
     Active Substance: CYCLOBENZAPRINE
  6. FOLIC ACID. [Concomitant]
     Active Substance: FOLIC ACID
  7. METFORMIN [Concomitant]
     Active Substance: METFORMIN HYDROCHLORIDE
  8. NOVOLOG [Concomitant]
     Active Substance: INSULIN ASPART
  9. CELECOXIB. [Concomitant]
     Active Substance: CELECOXIB
  10. DULOXETINE. [Concomitant]
     Active Substance: DULOXETINE
  11. VITAMIN C [Concomitant]
     Active Substance: ASCORBIC ACID
  12. FLUCANOZOLE [Concomitant]

REACTIONS (3)
  - Blood glucose increased [None]
  - Insurance issue [None]
  - Drug dose omission [None]
